FAERS Safety Report 7556646-5 (Version None)
Quarter: 2011Q2

REPORT INFORMATION
  Report Type: 
  Country: None (occurrence: None)
  Receive Date: 20110616
  Receipt Date: 20110616
  Transmission Date: 20111010
  Serious: No
  Sender: FDA-Public Use
  Company Number: None

PATIENT
  Age: 53 Year
  Sex: Female
  Weight: 58.0604 kg

DRUGS (1)
  1. NO-ADD SPF 30 WALMART [Suspect]
     Indication: PROPHYLAXIS AGAINST SOLAR RADIATION
     Dosage: PALM FULL APPLIED BY HAND DAILY TOP
     Route: 061
     Dates: start: 20050101, end: 20060102

REACTIONS (2)
  - SKIN BURNING SENSATION [None]
  - SKIN DISCOLOURATION [None]
